FAERS Safety Report 21466155 (Version 1)
Quarter: 2022Q4

REPORT INFORMATION
  Report Type: Spontaneous
  Country: US (occurrence: None)
  Receive Date: 20221014
  Receipt Date: 20221014
  Transmission Date: 20230113
  Serious: Yes (Disabling)
  Sender: FDA-Public Use
  Company Number: None

PATIENT
  Sex: Female

DRUGS (1)
  1. LEVOFLOXACIN [Suspect]
     Active Substance: LEVOFLOXACIN
     Indication: Bacterial infection
     Dosage: OTHER QUANTITY : 1 TABLET(S);?FREQUENCY : DAILY;?
     Route: 048
     Dates: start: 20180910, end: 20220913

REACTIONS (28)
  - Dehydration [None]
  - Bedridden [None]
  - Neuropathy peripheral [None]
  - Pruritus [None]
  - Vision blurred [None]
  - Vision blurred [None]
  - Migraine [None]
  - Dental caries [None]
  - Drug intolerance [None]
  - Tremor [None]
  - Muscle spasms [None]
  - Tendonitis [None]
  - Pneumothorax [None]
  - Dyspnoea [None]
  - Gastric disorder [None]
  - Retching [None]
  - Abdominal distension [None]
  - Food intolerance [None]
  - Abdominal pain [None]
  - Dyspepsia [None]
  - Back pain [None]
  - Stress [None]
  - Balance disorder [None]
  - Fall [None]
  - Joint lock [None]
  - Ophthalmic migraine [None]
  - Pain [None]
  - Adverse drug reaction [None]

NARRATIVE: CASE EVENT DATE: 20180910
